FAERS Safety Report 8316586-0 (Version None)
Quarter: 2012Q2

REPORT INFORMATION
  Report Type: 
  Country: None (occurrence: None)
  Receive Date: 20120427
  Receipt Date: 20120423
  Transmission Date: 20120825
  Serious: Yes (Other)
  Sender: FDA-Public Use
  Company Number: PHHY2012ZA035041

PATIENT
  Sex: Female

DRUGS (1)
  1. ZOLEDRONOC ACID [Suspect]
     Indication: PELVIC FRACTURE
     Dosage: 5 MG/100 ML, YEARLY
     Route: 042
     Dates: start: 20110101

REACTIONS (3)
  - FALL [None]
  - RIB FRACTURE [None]
  - PAIN [None]
